FAERS Safety Report 7444692-1 (Version None)
Quarter: 2011Q2

REPORT INFORMATION
  Report Type: 
  Country: None (occurrence: None)
  Receive Date: 20110426
  Receipt Date: 20110426
  Transmission Date: 20111010
  Serious: Yes (Hospitalization)
  Sender: FDA-Public Use
  Company Number: None

PATIENT
  Sex: Male
  Weight: 65.6 kg

DRUGS (1)
  1. TREANDA [Suspect]
     Indication: SMALL CELL LUNG CANCER STAGE UNSPECIFIED
     Dosage: 211 MG D1 + 8 Q 21 DAYS IV
     Route: 042
     Dates: start: 20110321, end: 20110321

REACTIONS (3)
  - COLLAPSE OF LUNG [None]
  - LOBAR PNEUMONIA [None]
  - ATRIAL FIBRILLATION [None]
